FAERS Safety Report 23907194 (Version 1)
Quarter: 2024Q2

REPORT INFORMATION
  Report Type: Spontaneous
  Country: US (occurrence: US)
  Receive Date: 20240528
  Receipt Date: 20240528
  Transmission Date: 20240716
  Serious: Yes (Hospitalization, Other)
  Sender: FDA-Public Use
  Company Number: US-ARBOR PHARMACEUTICALS, LLC-US-2024AZR000628

PATIENT
  Age: 59 Year
  Sex: Female

DRUGS (2)
  1. NIMODIPINE [Suspect]
     Active Substance: NIMODIPINE
     Indication: Subarachnoid haemorrhage
     Dosage: 60 MG
     Route: 048
  2. NIMODIPINE [Suspect]
     Active Substance: NIMODIPINE
     Dosage: 30 MG
     Route: 048

REACTIONS (2)
  - Vasoplegia syndrome [Recovered/Resolved]
  - Shock [Recovered/Resolved]
